FAERS Safety Report 23219744 (Version 1)
Quarter: 2023Q4

REPORT INFORMATION
  Report Type: Spontaneous
  Country: US (occurrence: US)
  Receive Date: 20231122
  Receipt Date: 20231122
  Transmission Date: 20240109
  Serious: No
  Sender: FDA-Public Use
  Company Number: US-AVADEL CNS PHARMACEUTICALS, LLC-2023AVA00085

PATIENT
  Age: 31 Year
  Sex: Female

DRUGS (7)
  1. LUMRYZ [Suspect]
     Active Substance: SODIUM OXYBATE
     Dosage: 4.5 G
     Dates: start: 202308
  2. LUMRYZ [Suspect]
     Active Substance: SODIUM OXYBATE
     Dosage: UNK
     Dates: start: 2023
  3. ALLEGRA ALLERGY [Concomitant]
     Active Substance: FEXOFENADINE HYDROCHLORIDE
     Dosage: UNK
     Dates: start: 20171001
  4. TYLENOL EXTRA STRENGTH [Concomitant]
     Active Substance: ACETAMINOPHEN
     Dosage: UNK
     Dates: start: 20171001
  5. IBUPROFEN IB [Concomitant]
     Active Substance: IBUPROFEN
     Dosage: UNK
     Dates: start: 20171001
  6. ARMODAFINIL [Concomitant]
     Active Substance: ARMODAFINIL
     Dosage: UNK
     Dates: start: 20190520
  7. VENLAFAXINE HCL [Concomitant]
     Active Substance: VENLAFAXINE HYDROCHLORIDE
     Dosage: UNK
     Dates: start: 20180906

REACTIONS (1)
  - Retching [Unknown]

NARRATIVE: CASE EVENT DATE: 20230801
